FAERS Safety Report 11409218 (Version 2)
Quarter: 2016Q3

REPORT INFORMATION
  Report Type: Spontaneous
  Country: DK (occurrence: DK)
  Receive Date: 20150824
  Receipt Date: 20160816
  Transmission Date: 20161109
  Serious: Yes (Life-Threatening, Hospitalization, Disabling)
  Sender: FDA-Public Use
  Company Number: DK-PFIZER INC-2015276501

PATIENT
  Age: 28 Year
  Sex: Male
  Weight: 50 kg

DRUGS (1)
  1. ZYVOXID [Suspect]
     Active Substance: LINEZOLID
     Indication: MYCOBACTERIUM ABSCESSUS INFECTION
     Dosage: 600 MG, 2X/DAY
     Route: 048
     Dates: start: 20150609, end: 20150616

REACTIONS (6)
  - Drug reaction with eosinophilia and systemic symptoms [Recovering/Resolving]
  - Cardiovascular insufficiency [Unknown]
  - Renal failure [Not Recovered/Not Resolved]
  - Liver disorder [Recovered/Resolved]
  - Multi-organ disorder [Recovering/Resolving]
  - Dialysis [Unknown]

NARRATIVE: CASE EVENT DATE: 20150613
